FAERS Safety Report 23541530 (Version 1)
Quarter: 2024Q1

REPORT INFORMATION
  Report Type: Spontaneous
  Country: ES (occurrence: ES)
  Receive Date: 20240219
  Receipt Date: 20240219
  Transmission Date: 20240410
  Serious: Yes (Other)
  Sender: FDA-Public Use
  Company Number: ES-AMGEN-ESPSP2023211495

PATIENT
  Age: 40 Year
  Sex: Male

DRUGS (24)
  1. ADALIMUMAB [Suspect]
     Active Substance: ADALIMUMAB\ISOPROPYL ALCOHOL
     Indication: Inflammatory bowel disease
     Dosage: UNK
     Route: 065
  2. ADALIMUMAB [Suspect]
     Active Substance: ADALIMUMAB\ISOPROPYL ALCOHOL
     Indication: Axial spondyloarthritis
  3. ADALIMUMAB [Suspect]
     Active Substance: ADALIMUMAB\ISOPROPYL ALCOHOL
     Indication: Peripheral spondyloarthritis
  4. ADALIMUMAB [Suspect]
     Active Substance: ADALIMUMAB\ISOPROPYL ALCOHOL
     Indication: Uveitis
  5. CERTOLIZUMAB [Concomitant]
     Active Substance: CERTOLIZUMAB
     Indication: Axial spondyloarthritis
     Dosage: UNK
     Route: 065
  6. CERTOLIZUMAB [Concomitant]
     Active Substance: CERTOLIZUMAB
     Indication: Inflammatory bowel disease
  7. CERTOLIZUMAB [Concomitant]
     Active Substance: CERTOLIZUMAB
     Indication: Peripheral spondyloarthritis
  8. CERTOLIZUMAB [Concomitant]
     Active Substance: CERTOLIZUMAB
     Indication: Uveitis
  9. ETANERCEPT [Concomitant]
     Active Substance: ETANERCEPT
     Indication: Peripheral spondyloarthritis
     Dosage: UNK
     Route: 065
  10. ETANERCEPT [Concomitant]
     Active Substance: ETANERCEPT
     Indication: Axial spondyloarthritis
  11. ETANERCEPT [Concomitant]
     Active Substance: ETANERCEPT
     Indication: Inflammatory bowel disease
  12. ETANERCEPT [Concomitant]
     Active Substance: ETANERCEPT
     Indication: Musculoskeletal disorder
  13. GOLIMUMAB [Concomitant]
     Active Substance: GOLIMUMAB
     Indication: Musculoskeletal disorder
     Dosage: UNK
     Route: 065
  14. GOLIMUMAB [Concomitant]
     Active Substance: GOLIMUMAB
     Indication: Axial spondyloarthritis
  15. GOLIMUMAB [Concomitant]
     Active Substance: GOLIMUMAB
     Indication: Inflammatory bowel disease
  16. GOLIMUMAB [Concomitant]
     Active Substance: GOLIMUMAB
     Indication: Peripheral spondyloarthritis
  17. INFLIXIMAB [Concomitant]
     Active Substance: INFLIXIMAB
     Indication: Peripheral spondyloarthritis
     Dosage: UNK
     Route: 065
  18. INFLIXIMAB [Concomitant]
     Active Substance: INFLIXIMAB
     Indication: Axial spondyloarthritis
  19. INFLIXIMAB [Concomitant]
     Active Substance: INFLIXIMAB
     Indication: Inflammatory bowel disease
  20. INFLIXIMAB [Concomitant]
     Active Substance: INFLIXIMAB
     Indication: Uveitis
  21. USTEKINUMAB [Concomitant]
     Active Substance: USTEKINUMAB
     Indication: Axial spondyloarthritis
     Dosage: UNK
     Route: 065
  22. USTEKINUMAB [Concomitant]
     Active Substance: USTEKINUMAB
     Indication: Inflammatory bowel disease
  23. USTEKINUMAB [Concomitant]
     Active Substance: USTEKINUMAB
     Indication: Musculoskeletal disorder
  24. USTEKINUMAB [Concomitant]
     Active Substance: USTEKINUMAB
     Indication: Peripheral spondyloarthritis

REACTIONS (3)
  - Peripheral spondyloarthritis [Unknown]
  - Hypersensitivity pneumonitis [Unknown]
  - Axial spondyloarthritis [Unknown]
